FAERS Safety Report 9482712 (Version 2)
Quarter: 2013Q3

REPORT INFORMATION
  Report Type: Spontaneous
  Country: US (occurrence: US)
  Receive Date: 20130828
  Receipt Date: 20130903
  Transmission Date: 20140515
  Serious: Yes (Other)
  Sender: FDA-Public Use
  Company Number: US-JNJFOC-20130812527

PATIENT
  Sex: Female

DRUGS (20)
  1. TOPIRAMATE [Suspect]
     Indication: EPILEPSY
     Route: 048
  2. TOPIRAMATE [Suspect]
     Indication: PARTIAL SEIZURES
     Route: 048
  3. LEVETIRACETAM [Suspect]
     Indication: EPILEPSY
     Route: 065
  4. LEVETIRACETAM [Suspect]
     Indication: PARTIAL SEIZURES
     Route: 065
  5. LAMOTRIGINE [Suspect]
     Indication: EPILEPSY
     Route: 065
  6. LAMOTRIGINE [Suspect]
     Indication: PARTIAL SEIZURES
     Route: 065
  7. ZONISAMIDE [Suspect]
     Indication: EPILEPSY
     Route: 065
  8. ZONISAMIDE [Suspect]
     Indication: PARTIAL SEIZURES
     Route: 065
  9. OXCARBAZEPINE [Suspect]
     Indication: EPILEPSY
     Route: 065
  10. OXCARBAZEPINE [Suspect]
     Indication: PARTIAL SEIZURES
     Route: 065
  11. PHENYTOIN [Suspect]
     Indication: EPILEPSY
     Route: 065
  12. PHENYTOIN [Suspect]
     Indication: PARTIAL SEIZURES
     Route: 065
  13. CARBAMAZEPINE [Suspect]
     Indication: EPILEPSY
     Route: 065
  14. CARBAMAZEPINE [Suspect]
     Indication: PARTIAL SEIZURES
     Route: 065
  15. VALPROIC ACID [Suspect]
     Indication: EPILEPSY
     Route: 065
  16. VALPROIC ACID [Suspect]
     Indication: PARTIAL SEIZURES
     Route: 065
  17. ETHOSUXIMIDE [Suspect]
     Indication: EPILEPSY
     Route: 065
  18. ETHOSUXIMIDE [Suspect]
     Indication: PARTIAL SEIZURES
     Route: 065
  19. FELBAMATE [Suspect]
     Indication: EPILEPSY
     Route: 065
  20. FELBAMATE [Suspect]
     Indication: PARTIAL SEIZURES
     Route: 065

REACTIONS (3)
  - Convulsion [Unknown]
  - Abortion spontaneous [Unknown]
  - Exposure during pregnancy [Recovered/Resolved]
